FAERS Safety Report 5723054-9 (Version None)
Quarter: 2008Q2

REPORT INFORMATION
  Report Type: 
  Country: None (occurrence: None)
  Receive Date: 20080423
  Receipt Date: 20071015
  Transmission Date: 20081010
  Serious: Yes (Life-Threatening, Hospitalization, Disabling, Other)
  Sender: FDA-Public Use
  Company Number: 248292

PATIENT
  Age: 69 Year
  Sex: Female

DRUGS (12)
  1. AVASTIN [Suspect]
     Indication: BREAST CANCER METASTATIC
     Dosage: 15 MG/KG, INTRAVENOUS
     Route: 042
     Dates: start: 20070522, end: 20070906
  2. AVASTIN [Suspect]
     Indication: LUNG ADENOCARCINOMA
     Dosage: 15 MG/KG, INTRAVENOUS
     Route: 042
     Dates: start: 20070522, end: 20070906
  3. CARBOPLATIN [Concomitant]
  4. TAXOL [Concomitant]
  5. ZOFRAN [Concomitant]
  6. DECADRON [Concomitant]
  7. BENADRYL [Concomitant]
  8. SOLU-CORTEF [Concomitant]
  9. ZANTAC [Concomitant]
  10. XANAX [Concomitant]
  11. NEUPOGEN [Concomitant]
  12. NEULASTA [Concomitant]

REACTIONS (1)
  - REVERSIBLE POSTERIOR LEUKOENCEPHALOPATHY SYNDROME [None]
